FAERS Safety Report 5220708-8 (Version None)
Quarter: 2007Q1

REPORT INFORMATION
  Report Type: 
  Country: None (occurrence: None)
  Receive Date: 20070125
  Receipt Date: 20070125
  Transmission Date: 20070707
  Serious: Yes (Hospitalization)
  Sender: FDA-Public Use
  Company Number: None

PATIENT
  Sex: Male
  Weight: 97.0698 kg

DRUGS (1)
  1. OXALIPLATIN [Suspect]
     Indication: NEOPLASM MALIGNANT

REACTIONS (3)
  - EATING DISORDER [None]
  - HICCUPS [None]
  - SLEEP DISORDER [None]
